FAERS Safety Report 7933635-X (Version None)
Quarter: 2011Q4

REPORT INFORMATION
  Report Type: 
  Country: None (occurrence: None)
  Receive Date: 20111118
  Receipt Date: 20111107
  Transmission Date: 20120403
  Serious: Yes (Hospitalization)
  Sender: FDA-Public Use
  Company Number: 2011SP045686

PATIENT
  Age: 69 Year
  Sex: Male

DRUGS (5)
  1. FAMOTIDINE [Concomitant]
  2. SODIUM HYDRATE [Concomitant]
  3. PEG-INTRON [Suspect]
     Indication: HEPATITIS C
     Dosage: 60 MCG; QW; SC
     Route: 058
     Dates: start: 20101129, end: 20110809
  4. LOXONIN (LOXOPROFEN) [Concomitant]
  5. REBETOL [Suspect]
     Indication: HEPATITIS C
     Dosage: 400 MG; BID; PO
     Route: 048
     Dates: start: 20101129, end: 20110815

REACTIONS (3)
  - SUBDURAL HAEMATOMA [None]
  - FALL [None]
  - HEAD INJURY [None]
